FAERS Safety Report 4611199-6 (Version None)
Quarter: 2005Q1

REPORT INFORMATION
  Report Type: 
  Country: None (occurrence: None)
  Receive Date: 20050314
  Receipt Date: 20040121
  Transmission Date: 20050727
  Serious: Yes (Hospitalization)
  Sender: FDA-Public Use
  Company Number: USA040157150

PATIENT
  Age: 57 Year
  Sex: Female

DRUGS (2)
  1. GEMZAR [Suspect]
     Indication: LEIOMYOSARCOMA RECURRENT
  2. GEMZAR [Suspect]
     Indication: NEOPLASM PROPHYLAXIS

REACTIONS (2)
  - COUGH [None]
  - DYSPNOEA [None]
